FAERS Safety Report 13262275 (Version 1)
Quarter: 2017Q1

REPORT INFORMATION
  Report Type: Spontaneous
  Country: US (occurrence: US)
  Receive Date: 20170222
  Receipt Date: 20170222
  Transmission Date: 20170428
  Serious: No
  Sender: FDA-Public Use
  Company Number: US-BIOGEN-2017BI00358039

PATIENT
  Sex: Female

DRUGS (1)
  1. TYSABRI [Suspect]
     Active Substance: NATALIZUMAB
     Indication: MULTIPLE SCLEROSIS
     Route: 065

REACTIONS (7)
  - Insomnia [Unknown]
  - Headache [Unknown]
  - Emotional disorder [Unknown]
  - Thinking abnormal [Unknown]
  - Mood altered [Unknown]
  - Nausea [Unknown]
  - Muscle spasms [Unknown]
